FAERS Safety Report 8890893 (Version 1)
Quarter: 2012Q4

REPORT INFORMATION
  Report Type: 
  Country: US (occurrence: US)
  Receive Date: 20121107
  Receipt Date: 20121107
  Transmission Date: 20130627
  Serious: Yes (Other)
  Sender: FDA-Public Use
  Company Number: PHEH2012US021416

PATIENT
  Sex: Female

DRUGS (8)
  1. RECLAST [Suspect]
     Indication: OSTEOPOROSIS
     Dosage: 5 mg/100 ml once per year
     Route: 042
     Dates: start: 20120907
  2. PLAVIX [Concomitant]
  3. ASPIRIN [Concomitant]
  4. SYNTHROID [Concomitant]
  5. METOPROLOL TARTRATE [Concomitant]
  6. CALCIUM [Concomitant]
  7. OMEGA 3 FISH OIL [Concomitant]
  8. HYDROCHLOROTHIAZIDE [Concomitant]

REACTIONS (4)
  - Vision blurred [Recovering/Resolving]
  - Pain in extremity [Unknown]
  - Muscle spasms [Unknown]
  - Influenza like illness [Unknown]
